FAERS Safety Report 9956403 (Version 2)
Quarter: 2014Q1

REPORT INFORMATION
  Report Type: Report from Study
  Country: US (occurrence: US)
  Receive Date: 20140304
  Receipt Date: 20140304
  Transmission Date: 20141002
  Serious: No
  Sender: FDA-Public Use
  Company Number: US-ABBVIE-11P-163-0849471-00

PATIENT
  Sex: Female
  Weight: 86.26 kg

DRUGS (31)
  1. HUMIRA 40 MG/0.8 ML PEN [Suspect]
     Indication: RHEUMATOID ARTHRITIS
     Route: 058
     Dates: start: 20110426, end: 201108
  2. HUMIRA 40 MG/0.8 ML PEN [Suspect]
     Indication: PSORIASIS
  3. HUMIRA [Suspect]
     Indication: PSORIATIC ARTHROPATHY
  4. HUMIRA [Suspect]
     Indication: PSORIASIS
  5. ERYTHROMYCIN BASE FILMTAB [Suspect]
     Indication: PRODUCT USED FOR UNKNOWN INDICATION
     Dates: start: 2011, end: 2011
  6. SOTALOL [Concomitant]
     Indication: BLOOD PRESSURE
  7. SOTALOL [Concomitant]
     Indication: ATRIAL FIBRILLATION
  8. UNKNOWN HEART MED [Concomitant]
     Indication: PRODUCT USED FOR UNKNOWN INDICATION
  9. BENADRYL [Concomitant]
     Indication: HYPERSENSITIVITY
  10. TEMAZEPAM [Concomitant]
     Indication: INSOMNIA
  11. KLONOPIN [Concomitant]
     Indication: INSOMNIA
  12. MULTIVITAMIN [Concomitant]
     Indication: VITAMIN SUPPLEMENTATION
  13. FISH OIL [Concomitant]
     Indication: BLOOD CHOLESTEROL
  14. SIMVASTATIN [Concomitant]
     Indication: PRODUCT USED FOR UNKNOWN INDICATION
  15. GABAPENTIN [Concomitant]
     Indication: NEUROPATHY PERIPHERAL
  16. GABAPENTIN [Concomitant]
     Indication: FIBROMYALGIA
  17. GABAPENTIN [Concomitant]
     Indication: PAIN
  18. GABAPENTIN [Concomitant]
     Indication: ARTHRALGIA
  19. METFORMIN [Concomitant]
     Indication: DIABETES MELLITUS
  20. DILTIAZEM [Concomitant]
     Indication: HYPERTENSION
  21. PRAVASTATIN [Concomitant]
     Indication: BLOOD CHOLESTEROL INCREASED
  22. CLONAZEPAM [Concomitant]
     Indication: ANXIETY
     Dosage: AS NEEDED
  23. FERROUS SULFATE [Concomitant]
     Indication: IRON DEFICIENCY
  24. FERROUS SULFATE [Concomitant]
     Indication: INCREASED TENDENCY TO BRUISE
  25. ASPIRIN (E.C.) [Concomitant]
     Indication: CARDIAC DISORDER
  26. ASPIRIN (E.C.) [Concomitant]
     Indication: PROPHYLAXIS
  27. VITAMIN D NOS [Concomitant]
     Indication: VITAMIN D DEFICIENCY
  28. OMEGA 3 FISH OIL [Concomitant]
     Indication: BLOOD TRIGLYCERIDES INCREASED
  29. OMEGA 3 FISH OIL [Concomitant]
     Indication: BLOOD CHOLESTEROL INCREASED
  30. NIACIN [Concomitant]
     Indication: BLOOD CHOLESTEROL INCREASED
     Dosage: AT NIGHT
  31. VITAMIN B12 [Concomitant]
     Indication: VITAMIN SUPPLEMENTATION

REACTIONS (2)
  - Psoriasis [Recovering/Resolving]
  - Rash [Recovered/Resolved]
